FAERS Safety Report 15693846 (Version 2)
Quarter: 2019Q1

REPORT INFORMATION
  Report Type: Spontaneous
  Country: FI (occurrence: FI)
  Receive Date: 20181206
  Receipt Date: 20190102
  Transmission Date: 20190417
  Serious: Yes (Hospitalization, Other)
  Sender: FDA-Public Use
  Company Number: FI-JNJFOC-20181203088

PATIENT
  Age: 93 Year
  Sex: Female

DRUGS (3)
  1. XARELTO [Suspect]
     Active Substance: RIVAROXABAN
     Indication: ATRIAL FIBRILLATION
     Route: 048
     Dates: start: 20181213
  2. AMLODIPINE BESILATE [Concomitant]
     Active Substance: AMLODIPINE BESYLATE
     Indication: SOMNOLENCE
     Route: 065
  3. XARELTO [Suspect]
     Active Substance: RIVAROXABAN
     Indication: ATRIAL FIBRILLATION
     Route: 048
     Dates: start: 20181116, end: 201811

REACTIONS (11)
  - Arthralgia [Unknown]
  - Feeding disorder [Unknown]
  - C-reactive protein increased [Unknown]
  - Loss of personal independence in daily activities [Unknown]
  - Product dose omission [Unknown]
  - Erythema [Unknown]
  - Contusion [Unknown]
  - Contusion [Unknown]
  - Erysipelas [Unknown]
  - Memory impairment [Unknown]
  - Contusion [Unknown]

NARRATIVE: CASE EVENT DATE: 2018
